FAERS Safety Report 16305011 (Version 1)
Quarter: 2019Q2

REPORT INFORMATION
  Report Type: Spontaneous
  Country: US (occurrence: US)
  Receive Date: 20190406
  Receipt Date: 20190406
  Transmission Date: 20190711
  Serious: Yes (Hospitalization)
  Sender: FDA-Public Use
  Company Number: None

PATIENT
  Age: 9 Year
  Sex: Male
  Weight: 21.7 kg

DRUGS (4)
  1. MERCAPTOPURINE. [Suspect]
     Active Substance: MERCAPTOPURINE
     Dates: end: 20181227
  2. DEXAMETHASONE. [Suspect]
     Active Substance: DEXAMETHASONE
     Dates: end: 20181225
  3. VINCRISTINE SULFATE. [Suspect]
     Active Substance: VINCRISTINE SULFATE
     Dosage: ?          OTHER DOSE:1.3 MG;?
     Dates: end: 20181220
  4. METHOTREXATE. [Suspect]
     Active Substance: METHOTREXATE
     Dates: end: 20181229

REACTIONS (18)
  - Pancytopenia [None]
  - Escherichia bacteraemia [None]
  - Face oedema [None]
  - Pancreatitis [None]
  - Pleural effusion [None]
  - Respiratory distress [None]
  - Hepatitis [None]
  - Fluid overload [None]
  - Febrile neutropenia [None]
  - International normalised ratio increased [None]
  - Nephropathy toxic [None]
  - Hypertension [None]
  - Coagulopathy [None]
  - Cholestasis [None]
  - Ascites [None]
  - Neutropenic colitis [None]
  - Activated partial thromboplastin time prolonged [None]
  - Acute kidney injury [None]

NARRATIVE: CASE EVENT DATE: 20181230
